FAERS Safety Report 8282801-5 (Version None)
Quarter: 2012Q2

REPORT INFORMATION
  Report Type: 
  Country: None (occurrence: None)
  Receive Date: 20120413
  Receipt Date: 20120330
  Transmission Date: 20120825
  Serious: Yes (Hospitalization)
  Sender: FDA-Public Use
  Company Number: US-ROCHE-1055647

PATIENT
  Sex: Male

DRUGS (1)
  1. XELODA [Suspect]
     Indication: PRODUCT USED FOR UNKNOWN INDICATION

REACTIONS (7)
  - DEHYDRATION [None]
  - THROMBOSIS IN DEVICE [None]
  - MALAISE [None]
  - NAUSEA [None]
  - VOMITING [None]
  - DIARRHOEA [None]
  - BLOOD POTASSIUM DECREASED [None]
